FAERS Safety Report 7568019-X (Version None)
Quarter: 2011Q2

REPORT INFORMATION
  Report Type: 
  Country: None (occurrence: None)
  Receive Date: 20110623
  Receipt Date: 20110620
  Transmission Date: 20111010
  Serious: Yes (Hospitalization, Other)
  Sender: FDA-Public Use
  Company Number: US-TEVA-287168USA

PATIENT
  Age: 83 Year
  Sex: Female

DRUGS (1)
  1. ACETAMINOPHEN AND OXYCODONE HCL [Suspect]

REACTIONS (2)
  - STRESS CARDIOMYOPATHY [None]
  - TORSADE DE POINTES [None]
